FAERS Safety Report 26050559 (Version 1)
Quarter: 2025Q4

REPORT INFORMATION
  Report Type: Spontaneous
  Country: US (occurrence: US)
  Receive Date: 20251116
  Receipt Date: 20251116
  Transmission Date: 20260118
  Serious: No
  Sender: BIOGEN
  Company Number: US-BIOGEN-2090400

PATIENT
  Age: 52 Year
  Sex: Female

DRUGS (1)
  1. TYSABRI [Suspect]
     Active Substance: NATALIZUMAB
     Indication: Multiple sclerosis
     Dates: start: 20250216, end: 20250911

REACTIONS (3)
  - Fall [Recovered/Resolved]
  - Joint noise [Unknown]
  - Joint injury [Unknown]

NARRATIVE: CASE EVENT DATE: 20251026
